FAERS Safety Report 12444369 (Version 1)
Quarter: 2016Q2

REPORT INFORMATION
  Report Type: Spontaneous
  Country: US (occurrence: US)
  Receive Date: 20160607
  Receipt Date: 20160607
  Transmission Date: 20160815
  Serious: No
  Sender: FDA-Public Use
  Company Number: US-SA-2016SA074416

PATIENT
  Age: 55 Year
  Sex: Male

DRUGS (5)
  1. TOUJEO [Suspect]
     Active Substance: INSULIN GLARGINE
     Indication: TYPE 2 DIABETES MELLITUS
     Dosage: DOSE:43 UNIT(S)
     Route: 065
     Dates: start: 20160323
  2. SOLOSTAR [Concomitant]
     Active Substance: DEVICE
     Dates: start: 20160323
  3. ACTOS [Concomitant]
     Active Substance: PIOGLITAZONE HYDROCHLORIDE
  4. GLUCOPHAGE [Concomitant]
     Active Substance: METFORMIN HYDROCHLORIDE
  5. PHENTERMINE. [Concomitant]
     Active Substance: PHENTERMINE

REACTIONS (4)
  - Peripheral swelling [Unknown]
  - Feeling abnormal [Unknown]
  - Weight decreased [Unknown]
  - Pain in extremity [Unknown]
